FAERS Safety Report 11302558 (Version 1)
Quarter: 2015Q3

REPORT INFORMATION
  Report Type: Spontaneous
  Country: FR (occurrence: FR)
  Receive Date: 20150723
  Receipt Date: 20150723
  Transmission Date: 20151125
  Serious: Yes (Hospitalization)
  Sender: FDA-Public Use
  Company Number: FR-SA-2015SA101736

PATIENT
  Age: 68 Year
  Sex: Male

DRUGS (13)
  1. INSTANYL [Concomitant]
     Active Substance: FENTANYL
     Dosage: SOLUTION FOR NASAL SPRAY?50 MICROGRAMS / DOSE
  2. RIFADINE [Suspect]
     Active Substance: RIFAMPIN
     Indication: OSTEOMYELITIS
     Route: 042
     Dates: start: 20150513
  3. DUROGESIC [Concomitant]
     Active Substance: FENTANYL
     Dosage: 12 MICROGRAM / HOUR (2.1 MG / 5.25 CM2)
  4. INNOHEP [Concomitant]
     Active Substance: TINZAPARIN SODIUM
     Dosage: 10000  I.U. ANTI-XA / 0.5 ML , SOLUTION FOR INJECTION (S.C) IN PREFILLED SYRINGE
  5. LYRICA [Concomitant]
     Active Substance: PREGABALIN
     Dosage: STRENGTH: 50 MG
  6. OFLOXACIN. [Suspect]
     Active Substance: OFLOXACIN
     Indication: OSTEOMYELITIS
     Dosage: STRENGTH:  200 MG / 40 ML
     Route: 042
     Dates: start: 20150505
  7. RIFADINE [Suspect]
     Active Substance: RIFAMPIN
     Indication: OSTEOMYELITIS
     Route: 042
     Dates: start: 20150505
  8. RIFADINE [Suspect]
     Active Substance: RIFAMPIN
     Indication: OSTEOMYELITIS
     Route: 042
     Dates: start: 20150514
  9. PAROXETINE [Concomitant]
     Active Substance: PAROXETINE\PAROXETINE HYDROCHLORIDE
  10. GLYCEROL\PARAFFIN [Concomitant]
     Active Substance: GLYCERIN\PARAFFIN
  11. HEPARIN [Concomitant]
     Active Substance: HEPARIN SODIUM
  12. TRANSIPEG [Concomitant]
     Active Substance: POLYETHYLENE GLYCOL 3350
     Dosage: 2.95 G?POWDER FOR ORAL SOLUTION IN SACHET
  13. BACLOFEN. [Concomitant]
     Active Substance: BACLOFEN

REACTIONS (1)
  - Prothrombin time ratio decreased [Recovering/Resolving]

NARRATIVE: CASE EVENT DATE: 20150507
